FAERS Safety Report 5034513-9 (Version None)
Quarter: 2006Q2

REPORT INFORMATION
  Report Type: 
  Country: None (occurrence: None)
  Receive Date: 20060623
  Receipt Date: 20060623
  Transmission Date: 20061013
  Serious: No
  Sender: FDA-Public Use
  Company Number: None

PATIENT
  Sex: Male
  Weight: 107.0489 kg

DRUGS (2)
  1. OXYCODONE HCL [Suspect]
     Dosage: 40 MG 1 BID PO
     Route: 048
     Dates: start: 20050929
  2. OXYCODONE HCL [Suspect]
     Dosage: 40 MG 1 BID PO
     Route: 048
     Dates: start: 20051029

REACTIONS (3)
  - DRUG EFFECT DECREASED [None]
  - PAIN [None]
  - THERAPEUTIC RESPONSE UNEXPECTED WITH DRUG SUBSTITUTION [None]
